FAERS Safety Report 6104103-5 (Version None)
Quarter: 2009Q1

REPORT INFORMATION
  Report Type: 
  Country: None (occurrence: None)
  Receive Date: 20090305
  Receipt Date: 20090225
  Transmission Date: 20090719
  Serious: Yes (Hospitalization, Other)
  Sender: FDA-Public Use
  Company Number: PHHY2009GB05606

PATIENT
  Age: 16 Year
  Sex: Male
  Weight: 57.4 kg

DRUGS (2)
  1. EXJADE [Suspect]
     Indication: THALASSAEMIA BETA
     Dosage: 1250 MG/DAY
     Dates: start: 20080601
  2. EXJADE [Suspect]
     Dosage: INCREASED DOSE

REACTIONS (8)
  - DIZZINESS [None]
  - FATIGUE [None]
  - HEADACHE [None]
  - INFECTIOUS MONONUCLEOSIS [None]
  - LETHARGY [None]
  - MALAISE [None]
  - PAIN IN EXTREMITY [None]
  - SYNCOPE [None]
